FAERS Safety Report 7366781-2 (Version None)
Quarter: 2011Q1

REPORT INFORMATION
  Report Type: 
  Country: None (occurrence: None)
  Receive Date: 20110322
  Receipt Date: 20110315
  Transmission Date: 20110831
  Serious: Yes (Hospitalization, Disabling)
  Sender: FDA-Public Use
  Company Number: DE-ROCHE-760631

PATIENT
  Sex: Female
  Weight: 56 kg

DRUGS (8)
  1. GRANISETRON HCL [Concomitant]
     Dosage: PRE-MEDICATION CHEMOTHERAPY
     Route: 042
     Dates: start: 20101123
  2. RANITIC [Concomitant]
     Dosage: PRE-MEDICATION CHEMOTHERAPY.
     Route: 042
     Dates: start: 20101123
  3. DEXAGALEN [Concomitant]
     Dosage: PRE-MEDICATION CHEMOTHERAPY.
     Route: 042
     Dates: start: 20101123
  4. ZOLEDRONIC ACID [Suspect]
     Route: 065
  5. PACLITAXEL [Concomitant]
     Route: 042
     Dates: start: 20101123
  6. AVASTIN [Suspect]
     Route: 042
     Dates: start: 20101123
  7. TAVEGIL [Concomitant]
     Dosage: PRE-MEDICATION CHEMOTHERAPY.
     Route: 042
     Dates: start: 20101123
  8. PAMIDRONATE DISODIUM [Suspect]
     Route: 042
     Dates: start: 20101101, end: 20101207

REACTIONS (1)
  - OSTEONECROSIS [None]
